FAERS Safety Report 24674814 (Version 2)
Quarter: 2025Q2

REPORT INFORMATION
  Report Type: Spontaneous
  Country: US (occurrence: US)
  Receive Date: 20241128
  Receipt Date: 20250409
  Transmission Date: 20250717
  Serious: Yes (Death, Other)
  Sender: TAKEDA
  Company Number: US-TAKEDA-2024TUS118648

PATIENT
  Sex: Male
  Weight: 36 kg

DRUGS (2)
  1. ENTYVIO [Suspect]
     Active Substance: VEDOLIZUMAB
     Indication: Crohn^s disease
  2. ENTYVIO [Suspect]
     Active Substance: VEDOLIZUMAB
     Indication: Colitis ulcerative

REACTIONS (6)
  - Hepatic cancer [Fatal]
  - Crohn^s disease [Unknown]
  - Musculoskeletal chest pain [Unknown]
  - Abdominal pain [Unknown]
  - Yellow skin [Unknown]
  - Swelling [Unknown]
